FAERS Safety Report 8223111-1 (Version None)
Quarter: 2012Q1

REPORT INFORMATION
  Report Type: 
  Country: None (occurrence: None)
  Receive Date: 20120321
  Receipt Date: 20120313
  Transmission Date: 20120608
  Serious: No
  Sender: FDA-Public Use
  Company Number: US-BIOGENIDEC-2012BI009039

PATIENT
  Age: 51 Year
  Sex: Female

DRUGS (3)
  1. AVONEX [Concomitant]
     Indication: MULTIPLE SCLEROSIS
     Route: 030
  2. TYSABRI [Suspect]
     Indication: MULTIPLE SCLEROSIS
     Route: 042
     Dates: start: 20061215, end: 20101007
  3. TYSABRI [Suspect]
     Route: 042
     Dates: start: 20111111

REACTIONS (6)
  - HEADACHE [None]
  - UPPER RESPIRATORY TRACT INFECTION [None]
  - EAR DISCOMFORT [None]
  - ASTHENIA [None]
  - HEMIPARESIS [None]
  - NASOPHARYNGITIS [None]
